FAERS Safety Report 4933063-5 (Version None)
Quarter: 2006Q1

REPORT INFORMATION
  Report Type: 
  Country: None (occurrence: None)
  Receive Date: 20060306
  Receipt Date: 20050902
  Transmission Date: 20060701
  Serious: Yes (Other)
  Sender: FDA-Public Use
  Company Number: PHBS2005JP13018

PATIENT
  Age: 60 Year
  Sex: Female
  Weight: 59 kg

DRUGS (12)
  1. AREDIA [Suspect]
     Indication: METASTASES TO BONE
     Dosage: 90 MG, ONCE/SINGLE
     Route: 042
     Dates: start: 20050725, end: 20050725
  2. AREDIA [Suspect]
     Dosage: 90 MG, ONCE/SINGLE
     Route: 042
     Dates: start: 20050822, end: 20050822
  3. LOXONIN [Concomitant]
     Route: 048
  4. ENDOXAN [Suspect]
     Indication: BREAST CANCER STAGE IV
     Dosage: UNK, UNK
     Route: 065
     Dates: start: 20050725
  5. ENDOXAN [Suspect]
     Dosage: 620 MG/DAY
     Route: 065
     Dates: start: 20050815
  6. ADRIACIN [Suspect]
     Indication: BREAST CANCER STAGE IV
     Route: 065
     Dates: start: 20050725
  7. ADRIACIN [Suspect]
     Dosage: 62 MG/DAY
     Route: 065
     Dates: start: 20050815
  8. FLUOROURACIL [Suspect]
     Indication: BREAST CANCER STAGE IV
     Dosage: 775 MG/DAY
     Route: 065
     Dates: start: 20050801
  9. FLUOROURACIL [Suspect]
     Dosage: 620 MG/DAY
     Route: 065
     Dates: start: 20050815
  10. DECADRON SRC [Concomitant]
     Dosage: 20 MG/DAY
  11. DECADRON SRC [Concomitant]
     Dosage: 8 MG/DAY
     Route: 065
  12. DECADRON SRC [Concomitant]
     Dosage: 20 MG/DAY
     Route: 065
     Dates: end: 20050725

REACTIONS (14)
  - ABSCESS [None]
  - BONE DISORDER [None]
  - C-REACTIVE PROTEIN DECREASED [None]
  - GINGIVAL DISCOLOURATION [None]
  - GINGIVAL OPERATION [None]
  - GINGIVITIS [None]
  - NEUTROPHIL COUNT DECREASED [None]
  - OSTEONECROSIS [None]
  - PERIODONTAL DISEASE [None]
  - PYREXIA [None]
  - STOMATITIS [None]
  - TOOTH DISORDER [None]
  - TOOTH EXTRACTION [None]
  - TUMOUR ULCERATION [None]
